FAERS Safety Report 7362350-9 (Version None)
Quarter: 2011Q1

REPORT INFORMATION
  Report Type: 
  Country: None (occurrence: None)
  Receive Date: 20110318
  Receipt Date: 20110310
  Transmission Date: 20110831
  Serious: Yes (Hospitalization, Other)
  Sender: FDA-Public Use
  Company Number: US-B.I. PHARMACEUTICALS,INC./RIDGEFIELD-2011-BP-07735BP

PATIENT
  Sex: Female

DRUGS (9)
  1. AVAPRO [Suspect]
  2. MAG OXIDE [Concomitant]
  3. NORPACE [Concomitant]
  4. SYNTHROID [Concomitant]
  5. VYTORIN [Concomitant]
  6. PRADAXA [Suspect]
     Dosage: 300 MG
     Route: 048
     Dates: start: 20110218
  7. DILTIAZEM [Concomitant]
  8. PROTONIX [Suspect]
  9. PRADAXA [Suspect]
     Indication: ATRIAL FIBRILLATION
     Dosage: 300 MG
     Route: 048
     Dates: start: 20110125, end: 20110214

REACTIONS (8)
  - FLATULENCE [None]
  - WEIGHT DECREASED [None]
  - ABDOMINAL PAIN [None]
  - HAEMORRHOIDAL HAEMORRHAGE [None]
  - APPENDICITIS PERFORATED [None]
  - DECREASED APPETITE [None]
  - VENTRICULAR EXTRASYSTOLES [None]
  - HAEMORRHOIDS [None]
